FAERS Safety Report 10439434 (Version 2)
Quarter: 2014Q3

REPORT INFORMATION
  Report Type: Spontaneous
  Country: US (occurrence: US)
  Receive Date: 20140908
  Receipt Date: 20140908
  Transmission Date: 20150326
  Serious: Yes (Other)
  Sender: FDA-Public Use
  Company Number: US-BRISTOL-MYERS SQUIBB COMPANY-20620076

PATIENT
  Age: 65 Year
  Sex: Female

DRUGS (9)
  1. OXYBUTYNIN [Concomitant]
     Active Substance: OXYBUTYNIN
     Dosage: TABS
  2. MORPHINE [Concomitant]
     Active Substance: MORPHINE
  3. METOPROLOL [Concomitant]
     Active Substance: METOPROLOL
     Dosage: 1/2 TAB TWICE A DAY
  4. VENLAFAXINE HCL [Concomitant]
     Active Substance: VENLAFAXINE HYDROCHLORIDE
     Indication: DEPRESSION
  5. WARFARIN [Concomitant]
     Active Substance: WARFARIN
     Dosage: ONE AND HALF TAB TWICWE/DAY
  6. DILTIAZEM HCL [Concomitant]
     Active Substance: DILTIAZEM HYDROCHLORIDE
     Dosage: CAPS
  7. TRAZODONE HYDROCHLORIDE. [Concomitant]
     Active Substance: TRAZODONE HYDROCHLORIDE
     Dosage: TABS
  8. ABILIFY [Suspect]
     Active Substance: ARIPIPRAZOLE
     Indication: DEPRESSION
  9. THIORIDAZINE [Concomitant]
     Active Substance: THIORIDAZINE
     Dosage: TABS

REACTIONS (1)
  - Cerebrovascular accident [Unknown]
